FAERS Safety Report 4689263-5 (Version None)
Quarter: 2005Q2

REPORT INFORMATION
  Report Type: 
  Country: None (occurrence: None)
  Receive Date: 20050613
  Receipt Date: 20050310
  Transmission Date: 20051028
  Serious: Yes (Death, Disabling, Other)
  Sender: FDA-Public Use
  Company Number: US-MERCK-0503USA02228

PATIENT
  Age: 57 Year
  Sex: Male
  Weight: 111 kg

DRUGS (6)
  1. VIOXX [Suspect]
     Indication: ARTHRALGIA
     Route: 048
     Dates: start: 19991201, end: 20040430
  2. LOZOL [Concomitant]
     Indication: HYPERTENSION
     Route: 065
     Dates: start: 19931201
  3. ZOCOR [Concomitant]
     Indication: BLOOD CHOLESTEROL INCREASED
     Route: 065
     Dates: start: 20011101, end: 20040430
  4. CARDIZEM [Concomitant]
     Indication: HYPERTENSION
     Route: 065
     Dates: start: 19931201, end: 19980101
  5. ASPIRIN [Concomitant]
     Indication: HYPERTENSION
     Route: 065
     Dates: end: 20040430
  6. PRINIVIL [Concomitant]
     Indication: HYPERTENSION
     Route: 065
     Dates: start: 19961001, end: 20040430

REACTIONS (13)
  - ARTERIOSCLEROSIS [None]
  - ATHEROSCLEROSIS [None]
  - BLOOD CHOLESTEROL INCREASED [None]
  - CARDIOMEGALY [None]
  - CORONARY ARTERY ATHEROSCLEROSIS [None]
  - CORONARY ARTERY OCCLUSION [None]
  - CORONARY ARTERY STENOSIS [None]
  - EMOTIONAL DISTRESS [None]
  - HERNIA REPAIR [None]
  - HIP ARTHROPLASTY [None]
  - MYOCARDIAL CALCIFICATION [None]
  - MYOCARDIAL INFARCTION [None]
  - OEDEMA PERIPHERAL [None]
